FAERS Safety Report 7778430-X (Version None)
Quarter: 2011Q3

REPORT INFORMATION
  Report Type: 
  Country: None (occurrence: None)
  Receive Date: 20110926
  Receipt Date: 20110920
  Transmission Date: 20111222
  Serious: Yes (Death, Hospitalization)
  Sender: FDA-Public Use
  Company Number: US-GLAXOSMITHKLINE-A0945316A

PATIENT
  Age: 85 Year
  Sex: Male

DRUGS (9)
  1. CARVEDILOL [Suspect]
     Indication: CARDIAC FAILURE CONGESTIVE
     Route: 048
  2. LISINOPRIL [Concomitant]
  3. GLIPIZIDE [Concomitant]
  4. PLAVIX [Concomitant]
  5. FUROSEMIDE [Concomitant]
  6. OXYBUTYNIN [Concomitant]
  7. ALLOPURINOL [Concomitant]
  8. ASPIRIN [Concomitant]
  9. AVODART [Suspect]
     Indication: BENIGN PROSTATIC HYPERPLASIA
     Dosage: .5MG UNKNOWN
     Route: 048
     Dates: end: 20110826

REACTIONS (2)
  - RENAL FAILURE [None]
  - CARDIAC FAILURE CONGESTIVE [None]
